FAERS Safety Report 20955815 (Version 1)
Quarter: 2022Q2

REPORT INFORMATION
  Report Type: Spontaneous
  Country: GB (occurrence: GB)
  Receive Date: 20220614
  Receipt Date: 20220614
  Transmission Date: 20220721
  Serious: Yes (Hospitalization)
  Sender: FDA-Public Use
  Company Number: GB-MYLANLABS-2022M1044324

PATIENT
  Age: 30 Year
  Sex: Male

DRUGS (10)
  1. RIFAMPIN [Interacting]
     Active Substance: RIFAMPIN
     Indication: Meningitis tuberculous
     Dosage: 600 MILLIGRAM, QD
     Route: 042
  2. RIFAMPIN [Interacting]
     Active Substance: RIFAMPIN
     Dosage: 1200 MILLIGRAM, QD
     Route: 042
  3. LINEZOLID [Interacting]
     Active Substance: LINEZOLID
     Indication: Meningitis tuberculous
     Dosage: 600 MILLIGRAM, BID
  4. LINEZOLID [Interacting]
     Active Substance: LINEZOLID
     Dosage: 600 MILLIGRAM, QD
  5. LEVOFLOXACIN [Suspect]
     Active Substance: LEVOFLOXACIN
     Indication: Meningitis tuberculous
     Dosage: 500 MILLIGRAM, BID
     Route: 042
  6. LEVOFLOXACIN [Suspect]
     Active Substance: LEVOFLOXACIN
     Dosage: RESTARTED THERAPY
     Route: 042
  7. ISONIAZID [Suspect]
     Active Substance: ISONIAZID
     Indication: Meningitis tuberculous
     Dosage: 300 MILLIGRAM
     Route: 042
  8. PYRAZINAMIDE [Suspect]
     Active Substance: PYRAZINAMIDE
     Indication: Meningitis tuberculous
     Dosage: 2 GRAM, QD
     Route: 048
  9. DEXAMETHASONE [Suspect]
     Active Substance: DEXAMETHASONE
     Indication: Meningitis tuberculous
     Dosage: 0.3 MILLIGRAM/KILOGRAM, QD
     Route: 042
  10. DEXAMETHASONE [Suspect]
     Active Substance: DEXAMETHASONE
     Indication: Central nervous system vasculitis
     Dosage: UNK

REACTIONS (5)
  - Hydrocephalus [Recovered/Resolved]
  - Central nervous system vasculitis [Recovered/Resolved]
  - Paradoxical drug reaction [Recovered/Resolved]
  - Drug level decreased [Recovered/Resolved]
  - Drug interaction [Unknown]
